FAERS Safety Report 7587928-9 (Version None)
Quarter: 2011Q3

REPORT INFORMATION
  Report Type: 
  Country: None (occurrence: None)
  Receive Date: 20110705
  Receipt Date: 20110627
  Transmission Date: 20111222
  Serious: Yes (Other)
  Sender: FDA-Public Use
  Company Number: FR-BRISTOL-MYERS SQUIBB COMPANY-15862600

PATIENT
  Age: 91 Year
  Sex: Female

DRUGS (6)
  1. BISOPROLOL FUMARATE [Concomitant]
     Dates: start: 20110512
  2. HEMIGOXINE NATIVELLE [Concomitant]
     Dates: start: 20110501
  3. COUMADIN [Suspect]
     Dosage: RESTARTED WITH 1MG/DAY
     Route: 048
  4. MONICOR LP [Concomitant]
     Dates: start: 20110501
  5. FUROSEMIDE [Concomitant]
  6. MEMANTINE HYDROCHLORIDE [Concomitant]
     Dates: start: 20101001, end: 20110501

REACTIONS (4)
  - ECCHYMOSIS [None]
  - OEDEMA PERIPHERAL [None]
  - FALL [None]
  - INTERNATIONAL NORMALISED RATIO INCREASED [None]
